FAERS Safety Report 6241358-0 (Version None)
Quarter: 2009Q2

REPORT INFORMATION
  Report Type: 
  Country: None (occurrence: None)
  Receive Date: 20090619
  Receipt Date: 20090619
  Transmission Date: 20091009
  Serious: No
  Sender: FDA-Public Use
  Company Number: None

PATIENT
  Age: 63 Year
  Sex: Male
  Weight: 99.7913 kg

DRUGS (1)
  1. ZICAM COLD REMEDY NASAL GEL ZICAM [Suspect]
     Indication: NASOPHARYNGITIS
     Dosage: AS DIRECTED. EVERY 4 HOURS
     Dates: start: 20090601, end: 20090606

REACTIONS (1)
  - HYPOSMIA [None]
